FAERS Safety Report 12834273 (Version 3)
Quarter: 2018Q4

REPORT INFORMATION
  Report Type: Spontaneous
  Country: PL (occurrence: PL)
  Receive Date: 20161010
  Receipt Date: 20181104
  Transmission Date: 20190204
  Serious: Yes (Hospitalization, Other)
  Sender: FDA-Public Use
  Company Number: PHHY2016PL136963

PATIENT
  Age: 68 Year
  Sex: Female

DRUGS (6)
  1. KETOPROFEN. [Suspect]
     Active Substance: KETOPROFEN
     Indication: BACK PAIN
     Dosage: 100 MG, BID
     Route: 065
  2. ENALAPRIL [Suspect]
     Active Substance: ENALAPRIL
     Indication: PRODUCT USED FOR UNKNOWN INDICATION
     Dosage: 10 MG, BID
     Route: 065
  3. BISOPROLOL [Suspect]
     Active Substance: BISOPROLOL
     Indication: PRODUCT USED FOR UNKNOWN INDICATION
     Dosage: 5 MG, QD
     Route: 065
  4. ACETYLSALICYLIC ACID [Suspect]
     Active Substance: ASPIRIN
     Indication: PRODUCT USED FOR UNKNOWN INDICATION
     Dosage: 75 MG, QD
     Route: 065
  5. ATORVASTATIN [Suspect]
     Active Substance: ATORVASTATIN
     Indication: PRODUCT USED FOR UNKNOWN INDICATION
     Dosage: 40 MG, QD
     Route: 065
  6. CLOPIDOGREL [Suspect]
     Active Substance: CLOPIDOGREL BISULFATE
     Indication: PRODUCT USED FOR UNKNOWN INDICATION
     Dosage: 75 MG, UNK
     Route: 065

REACTIONS (14)
  - Dyspnoea [Recovered/Resolved]
  - Drug effect incomplete [Unknown]
  - Cough [Recovered/Resolved]
  - Heart rate increased [Unknown]
  - Back pain [Unknown]
  - Sweating fever [Unknown]
  - Wheezing [Unknown]
  - Body temperature increased [Unknown]
  - Hypertension [Unknown]
  - Dysphonia [Recovered/Resolved]
  - Productive cough [Recovered/Resolved]
  - Pulmonary oedema [Recovered/Resolved]
  - Dysarthria [Unknown]
  - Speech disorder [Recovered/Resolved]
